FAERS Safety Report 7480957-5 (Version None)
Quarter: 2011Q2

REPORT INFORMATION
  Report Type: 
  Country: None (occurrence: None)
  Receive Date: 20110506
  Receipt Date: 20110502
  Transmission Date: 20111010
  Serious: Yes (Other)
  Sender: FDA-Public Use
  Company Number: A0925297A

PATIENT
  Age: 23 Year
  Sex: Male

DRUGS (3)
  1. TEFRETOL-XR [Concomitant]
  2. GLUCOSE OXIDASE+LACTOPEROXIDASE+LYSOZYME+NA MONOFLUOROPHOSPH (GLUCOSE [Suspect]
     Indication: DENTAL CARE
     Dosage: DENTAL
     Route: 004
  3. LEVETIRACETAM [Concomitant]

REACTIONS (7)
  - INCORRECT ROUTE OF DRUG ADMINISTRATION [None]
  - STATUS EPILEPTICUS [None]
  - HAEMORRHOIDS [None]
  - CONDITION AGGRAVATED [None]
  - ACCIDENTAL EXPOSURE [None]
  - CONVULSION [None]
  - COLONOSCOPY [None]
